FAERS Safety Report 14515601 (Version 1)
Quarter: 2018Q1

REPORT INFORMATION
  Report Type: Spontaneous
  Country: US (occurrence: US)
  Receive Date: 20180210
  Receipt Date: 20180210
  Transmission Date: 20180509
  Serious: No
  Sender: FDA-Public Use
  Company Number: US-TEVA-2018-US-848797

PATIENT
  Age: 70 Year
  Sex: Female

DRUGS (1)
  1. AZITHROMYCIN ANHYDROUS. [Suspect]
     Active Substance: AZITHROMYCIN ANHYDROUS
     Indication: BRONCHITIS
     Route: 048
     Dates: start: 20180111, end: 20180112

REACTIONS (4)
  - Throat irritation [Unknown]
  - Diarrhoea [Unknown]
  - Breath sounds abnormal [Unknown]
  - Insomnia [Unknown]
